FAERS Safety Report 14304509 (Version 1)
Quarter: 2017Q4

REPORT INFORMATION
  Report Type: Report from Study
  Country: JP (occurrence: JP)
  Receive Date: 20171219
  Receipt Date: 20171219
  Transmission Date: 20180321
  Serious: Yes (Hospitalization)
  Sender: FDA-Public Use
  Company Number: JP-OTSUKA-009633

PATIENT
  Age: 71 Year
  Sex: Male

DRUGS (16)
  1. CONTOMIN [Concomitant]
     Active Substance: CHLORPROMAZINE
     Indication: SCHIZOPHRENIA
     Dosage: 100 MG, QD
     Route: 048
     Dates: end: 20091030
  2. ARIPIPRAZOLE. [Suspect]
     Active Substance: ARIPIPRAZOLE
     Indication: SCHIZOPHRENIA
     Dosage: 6 MG, QD
     Route: 048
     Dates: start: 20091001, end: 20091019
  3. UNIPHYL LA TABLETS 400MG [Concomitant]
     Dosage: UNK
     Dates: end: 20091029
  4. PANTOSIN [Concomitant]
     Active Substance: PANTETHINE
     Dosage: 600 MG, QD
     Route: 048
  5. LULLAN [Concomitant]
     Active Substance: PEROSPIRONE HYDROCHLORIDE
     Indication: SCHIZOPHRENIA
     Dosage: 40 MG, QD
     Route: 048
     Dates: end: 20091030
  6. GASMOTIN [Concomitant]
     Active Substance: MOSAPRIDE CITRATE
     Dosage: 15 MG, QD
     Route: 048
  7. SENNARIDE [Concomitant]
     Active Substance: SENNOSIDES A AND B
     Dosage: 24 MG, QD
     Route: 048
  8. LACTOMIN [Concomitant]
     Active Substance: LACTOBACILLUS ACIDOPHILUS
     Dosage: 6 G, DAILY DOSE
     Route: 048
  9. GASCON [Concomitant]
     Active Substance: DIMETHICONE
     Dosage: 240 MG, QD
     Route: 048
  10. ARIPIPRAZOLE. [Suspect]
     Active Substance: ARIPIPRAZOLE
     Dosage: 12 MG, QD
     Route: 048
     Dates: start: 20091020, end: 20091030
  11. ESTAZOLAM. [Concomitant]
     Active Substance: ESTAZOLAM
     Indication: INSOMNIA
     Dosage: 4 MG, QD
     Route: 048
  12. KENEI G [Concomitant]
     Active Substance: GLYCERIN
     Indication: SUBILEUS
     Dosage: 30 ML, DAILY DOSE
     Route: 054
     Dates: start: 20091028, end: 20091028
  13. SENNA [Concomitant]
     Active Substance: SENNA LEAF\SENNOSIDES\SENNOSIDES A AND B
     Dosage: TABS
  14. GLYCERIN. [Concomitant]
     Active Substance: GLYCERIN
     Dosage: ENEMA
     Dates: start: 20091028, end: 20091028
  15. AKIRIDEN [Suspect]
     Active Substance: BIPERIDEN
     Dosage: 6 MG, QD
     Route: 048
  16. THEO-DUR [Concomitant]
     Active Substance: THEOPHYLLINE ANHYDROUS
     Dosage: 150 MG, QD
     Route: 048
     Dates: end: 20091029

REACTIONS (1)
  - Subileus [Recovering/Resolving]

NARRATIVE: CASE EVENT DATE: 20091030
